FAERS Safety Report 5952535-8 (Version None)
Quarter: 2008Q4

REPORT INFORMATION
  Report Type: 
  Country: None (occurrence: None)
  Receive Date: 20081023
  Receipt Date: 20080715
  Transmission Date: 20090506
  Serious: Yes (Other)
  Sender: FDA-Public Use
  Company Number: 50565

PATIENT
  Age: 56 Year
  Sex: Male
  Weight: 74.3899 kg

DRUGS (2)
  1. LEUCOVORIN CALCIUM [Suspect]
     Indication: COLON CANCER METASTATIC
     Dosage: 350MG IV INFUSION
     Route: 042
     Dates: start: 20080501, end: 20080715
  2. 5-FU AND OXALIPLATIN [Concomitant]

REACTIONS (2)
  - RASH [None]
  - VOMITING [None]
